FAERS Safety Report 8315817-0 (Version None)
Quarter: 2012Q2

REPORT INFORMATION
  Report Type: 
  Country: None (occurrence: None)
  Receive Date: 20120427
  Receipt Date: 20120416
  Transmission Date: 20120825
  Serious: Yes (Hospitalization, Other)
  Sender: FDA-Public Use
  Company Number: US-PAR PHARMACEUTICAL, INC-2012SCPR004322

PATIENT

DRUGS (2)
  1. ZOLPIDEM TARTRATE [Suspect]
     Indication: SLEEP DISORDER
     Dosage: UNK, UNKNOWN
     Route: 065
  2. CARBIDOPA [Concomitant]
     Indication: PRODUCT USED FOR UNKNOWN INDICATION
     Dosage: UNK, UNKNOWN
     Route: 065

REACTIONS (7)
  - MOUTH BREATHING [None]
  - HYPERTENSION [None]
  - CONFUSIONAL STATE [None]
  - BRAIN INJURY [None]
  - MEMORY IMPAIRMENT [None]
  - JOINT INJURY [None]
  - FALL [None]
